FAERS Safety Report 11124789 (Version 1)
Quarter: 2015Q2

REPORT INFORMATION
  Report Type: Spontaneous
  Country: GB (occurrence: None)
  Receive Date: 20150518
  Receipt Date: 20150518
  Transmission Date: 20150821
  Serious: Yes (Hospitalization, Other)
  Sender: FDA-Public Use
  Company Number: 2015-11285

PATIENT
  Age: 87 Year
  Sex: Male

DRUGS (15)
  1. WARFARIN [Concomitant]
     Active Substance: WARFARIN
  2. BISOPROLOL [Concomitant]
     Active Substance: BISOPROLOL
  3. FINASTERIDE. [Concomitant]
     Active Substance: FINASTERIDE
  4. VISCOTEARS (CARBOMER) [Concomitant]
  5. ALFACALCIDOL [Concomitant]
     Active Substance: ALFACALCIDOL
  6. ASPIRIN (ACETYLSALICYLIC ACID) [Concomitant]
     Active Substance: ASPIRIN
  7. CHLORAMPHENICOL [Concomitant]
     Active Substance: CHLORAMPHENICOL
  8. GAVISCON (ALGINIC ACID, ALUMINIUM HYDROXIDE GEL, DRIED, MAGNESIUM TRISILICATE, SODIUM ALGINATE, SODIUM BICARBONATE) [Concomitant]
  9. ATORVASTATIN [Concomitant]
     Active Substance: ATORVASTATIN
  10. CODEINE [Concomitant]
     Active Substance: CODEINE
  11. ALFUZOSIN [Concomitant]
     Active Substance: ALFUZOSIN
  12. FUROSEMIDE. [Concomitant]
     Active Substance: FUROSEMIDE
  13. EYLEA [Suspect]
     Active Substance: AFLIBERCEPT
     Indication: PRODUCT USED FOR UNKNOWN INDICATION
     Route: 031
     Dates: start: 20150206
  14. ESOMEPRAZOLE [Concomitant]
     Active Substance: ESOMEPRAZOLE
  15. LEVOTHYROXINE [Concomitant]
     Active Substance: LEVOTHYROXINE

REACTIONS (4)
  - Staphylococcal infection [None]
  - Endophthalmitis [None]
  - Visual acuity reduced [None]
  - Vitreous floaters [None]

NARRATIVE: CASE EVENT DATE: 20150206
